FAERS Safety Report 14093556 (Version 1)
Quarter: 2017Q4

REPORT INFORMATION
  Report Type: Spontaneous
  Country: GB (occurrence: GB)
  Receive Date: 20171016
  Receipt Date: 20171016
  Transmission Date: 20180321
  Serious: Yes (Death, Hospitalization, Other)
  Sender: FDA-Public Use
  Company Number: GB-TEVA-814216ACC

PATIENT
  Age: 6 Month
  Sex: Male
  Weight: 23 kg

DRUGS (4)
  1. ACTINOMYCIN D [Suspect]
     Active Substance: DACTINOMYCIN
     Indication: SARCOMA METASTATIC
     Dosage: UNK
     Route: 065
     Dates: start: 20170728
  2. XALKORI [Suspect]
     Active Substance: CRIZOTINIB
     Indication: EPITHELIOID SARCOMA METASTATIC
     Dosage: 250 MILLIGRAM DAILY;
     Route: 048
     Dates: start: 20170811
  3. VINCRISTINE [Suspect]
     Active Substance: VINCRISTINE
     Indication: SARCOMA METASTATIC
     Route: 065
     Dates: start: 20170728
  4. CYCLOPHOSPHAMIDE. [Suspect]
     Active Substance: CYCLOPHOSPHAMIDE
     Indication: SARCOMA METASTATIC
     Route: 065
     Dates: start: 20170728

REACTIONS (10)
  - Sepsis [Unknown]
  - Malaise [Fatal]
  - Epithelioid sarcoma [Unknown]
  - Hypoxia [Fatal]
  - Ascites [Unknown]
  - Systemic candida [Fatal]
  - Acidosis [Fatal]
  - Disease progression [Fatal]
  - Pleural effusion [Fatal]
  - Multiple organ dysfunction syndrome [Fatal]

NARRATIVE: CASE EVENT DATE: 20170812
